FAERS Safety Report 7396229-3 (Version None)
Quarter: 2011Q2

REPORT INFORMATION
  Report Type: 
  Country: None (occurrence: None)
  Receive Date: 20110406
  Receipt Date: 20110328
  Transmission Date: 20111010
  Serious: Yes (Hospitalization)
  Sender: FDA-Public Use
  Company Number: BR-NOVOPROD-325838

PATIENT
  Age: 56 Year
  Sex: Male

DRUGS (1)
  1. PROTAPHANE [Suspect]
     Indication: PRODUCT USED FOR UNKNOWN INDICATION
     Dosage: UNK
     Route: 065

REACTIONS (3)
  - FEELING ABNORMAL [None]
  - INCOHERENT [None]
  - BLOOD GLUCOSE INCREASED [None]
